FAERS Safety Report 4717258-1 (Version None)
Quarter: 2005Q3

REPORT INFORMATION
  Report Type: 
  Country: None (occurrence: None)
  Receive Date: 20050715
  Receipt Date: 20050707
  Transmission Date: 20060218
  Serious: Yes (Hospitalization, Other)
  Sender: FDA-Public Use
  Company Number: 203796

PATIENT
  Age: 62 Year
  Sex: Male

DRUGS (3)
  1. AVONEX [Suspect]
     Dosage: 30 UG; QW ; IM
     Route: 030
     Dates: start: 20010101, end: 20031001
  2. AVONEX [Suspect]
     Indication: MULTIPLE SCLEROSIS
     Dosage: 30 UG;QW; IM
     Route: 030
     Dates: start: 20031001, end: 20040821
  3. OXCARBAZEPINE [Concomitant]

REACTIONS (8)
  - CHOLESTASIS [None]
  - CYTOLYTIC HEPATITIS [None]
  - INFLUENZA LIKE ILLNESS [None]
  - OEDEMATOUS PANCREATITIS [None]
  - PANCREATITIS ACUTE [None]
  - SPLENOMEGALY [None]
  - URINARY TRACT DISORDER [None]
  - VENTRICULAR EXTRASYSTOLES [None]
